FAERS Safety Report 5456832-4 (Version None)
Quarter: 2007Q3

REPORT INFORMATION
  Report Type: 
  Country: None (occurrence: None)
  Receive Date: 20070918
  Receipt Date: 20070228
  Transmission Date: 20080115
  Serious: No
  Sender: FDA-Public Use
  Company Number: US-ASTRAZENECA-2006UW26744

PATIENT
  Age: 48 Year
  Sex: Male
  Weight: 122.3 kg

DRUGS (2)
  1. SEROQUEL [Suspect]
     Route: 048
     Dates: start: 20020101, end: 20050101
  2. ZYPREXA [Suspect]
     Route: 048
     Dates: start: 20020101, end: 20030101

REACTIONS (3)
  - DIABETES MELLITUS [None]
  - GLYCOSURIA [None]
  - OBESITY [None]
